FAERS Safety Report 7878095-2 (Version None)
Quarter: 2011Q4

REPORT INFORMATION
  Report Type: 
  Country: None (occurrence: None)
  Receive Date: 20111101
  Receipt Date: 20111025
  Transmission Date: 20120403
  Serious: No
  Sender: FDA-Public Use
  Company Number: US-BIOGENIDEC-2011BI034105

PATIENT
  Sex: Female

DRUGS (2)
  1. TYSABRI [Suspect]
     Indication: MULTIPLE SCLEROSIS
     Route: 042
     Dates: start: 20110225
  2. AVONEX [Concomitant]
     Indication: MULTIPLE SCLEROSIS
     Route: 030
     Dates: start: 20070416

REACTIONS (12)
  - CATARACT OPERATION [None]
  - VISUAL IMPAIRMENT [None]
  - NASOPHARYNGITIS [None]
  - STRESS [None]
  - EYE INJURY [None]
  - MIGRAINE [None]
  - VISUAL ACUITY REDUCED [None]
  - DRY MOUTH [None]
  - CATARACT [None]
  - CATARACT OPERATION COMPLICATION [None]
  - EYE LASER SURGERY [None]
  - PERIPHERAL COLDNESS [None]
